FAERS Safety Report 8889398 (Version 1)
Quarter: 2012Q4

REPORT INFORMATION
  Report Type: Spontaneous
  Country: US (occurrence: None)
  Receive Date: 20121102
  Receipt Date: 20121102
  Transmission Date: 20130627
  Serious: Yes (Death)
  Sender: FDA-Public Use
  Company Number: None

PATIENT
  Age: 84 Year
  Sex: Male

DRUGS (1)
  1. DABIGATRAN [Suspect]

REACTIONS (3)
  - Unresponsive to stimuli [None]
  - Cerebral haemorrhage [None]
  - Brain herniation [None]
